FAERS Safety Report 5226662-7 (Version None)
Quarter: 2007Q1

REPORT INFORMATION
  Report Type: 
  Country: None (occurrence: None)
  Receive Date: 20070201
  Receipt Date: 20070123
  Transmission Date: 20070707
  Serious: No
  Sender: FDA-Public Use
  Company Number: GB-SHR-GB-2006-007039

PATIENT
  Age: 40 Year
  Sex: Female
  Weight: 57.1 kg

DRUGS (5)
  1. BETASERON [Suspect]
     Dosage: 8 MIU, UNK
     Route: 058
     Dates: start: 20050815
  2. DETRUSITOL XL [Concomitant]
     Dosage: 4 MG, UNK
     Route: 048
  3. CITALOPRAM HYDROBROMIDE [Concomitant]
     Dosage: 20 MG, UNK
     Route: 048
  4. MOVICOL [Concomitant]
     Dosage: UNK TAB(S), UNK
     Route: 048
  5. VITAMINS [Concomitant]

REACTIONS (1)
  - WEIGHT INCREASED [None]
